FAERS Safety Report 8760714 (Version 2)
Quarter: 2012Q4

REPORT INFORMATION
  Report Type: 
  Country: GB (occurrence: GB)
  Receive Date: 20120830
  Receipt Date: 20120912
  Transmission Date: 20130627
  Serious: Yes (Disabling, Other)
  Sender: FDA-Public Use
  Company Number: GB-BAYER-2012-087617

PATIENT
  Age: 35 Year
  Sex: Female

DRUGS (1)
  1. MIRENA [Suspect]
     Dosage: UNK
     Dates: start: 20111025, end: 20120509

REACTIONS (4)
  - Depression [Recovered/Resolved]
  - Mental disorder [Recovered/Resolved]
  - Activities of daily living impaired [Recovered/Resolved]
  - Anxiety [Recovering/Resolving]
